FAERS Safety Report 10974554 (Version 2)
Quarter: 2015Q2

REPORT INFORMATION
  Report Type: Spontaneous
  Country: US (occurrence: US)
  Receive Date: 20150401
  Receipt Date: 20150521
  Transmission Date: 20150821
  Serious: Yes (Hospitalization)
  Sender: FDA-Public Use
  Company Number: US-TEVA-550062USA

PATIENT
  Sex: Female

DRUGS (5)
  1. RAMIPRIL. [Concomitant]
     Active Substance: RAMIPRIL
     Indication: CARDIOVASCULAR EVENT PROPHYLAXIS
     Dosage: 2.5 MILLIGRAM DAILY;
  2. DISOPYRAMIDE [Suspect]
     Active Substance: DISOPYRAMIDE
     Indication: HEART RATE IRREGULAR
     Route: 065
  3. LIBRIUM [Suspect]
     Active Substance: CHLORDIAZEPOXIDE HYDROCHLORIDE
     Route: 065
  4. VALIUM [Suspect]
     Active Substance: DIAZEPAM
     Route: 065
  5. NORPACE [Concomitant]
     Active Substance: DISOPYRAMIDE PHOSPHATE
     Indication: HEART RATE IRREGULAR

REACTIONS (7)
  - Product substitution issue [Unknown]
  - Heart rate irregular [Unknown]
  - Heart rate decreased [Unknown]
  - Adverse drug reaction [Unknown]
  - Heart rate increased [Unknown]
  - Adverse event [Unknown]
  - Surgery [Unknown]
